FAERS Safety Report 6698293-3 (Version None)
Quarter: 2010Q2

REPORT INFORMATION
  Report Type: 
  Country: None (occurrence: None)
  Receive Date: 20100427
  Receipt Date: 20100416
  Transmission Date: 20101027
  Serious: Yes (Death)
  Sender: FDA-Public Use
  Company Number: CZ-JNJFOC-20100406021

PATIENT
  Age: 65 Year
  Sex: Female
  Weight: 54 kg

DRUGS (11)
  1. REMICADE [Suspect]
     Indication: CROHN'S DISEASE
     Route: 042
  2. PENTASA [Concomitant]
     Dosage: DOSE 2-4 G DAILY
  3. HELICID [Concomitant]
  4. PREDNISONE TAB [Concomitant]
     Dosage: DOSE 5-10 MG DAILY
  5. HUMULIN INSULIN [Concomitant]
     Indication: TYPE 2 DIABETES MELLITUS
     Route: 058
  6. CIPROFLOXACIN [Concomitant]
     Route: 048
  7. METRONIDAZOLE [Concomitant]
     Route: 048
  8. ALLOPURINOL [Concomitant]
     Route: 048
  9. SERTRALINE HCL [Concomitant]
  10. NYDRAZID [Concomitant]
  11. BENEMICIN [Concomitant]
     Route: 048

REACTIONS (2)
  - EXTRAPULMONARY TUBERCULOSIS [None]
  - LATENT TUBERCULOSIS [None]
